FAERS Safety Report 4691553-7 (Version None)
Quarter: 2005Q2

REPORT INFORMATION
  Report Type: 
  Country: None (occurrence: None)
  Receive Date: 20050608
  Receipt Date: 20050202
  Transmission Date: 20051028
  Serious: Yes (Disabling)
  Sender: FDA-Public Use
  Company Number: 394550

PATIENT
  Age: 16 Year
  Sex: Male
  Weight: 83.9 kg

DRUGS (1)
  1. ACCUTANE [Suspect]
     Indication: ACNE CYSTIC
     Dosage: 40 MG 3 PER DAY ORAL
     Route: 048
     Dates: start: 20041112, end: 20041203

REACTIONS (3)
  - ANTISOCIAL BEHAVIOUR [None]
  - DEPRESSION [None]
  - PERSONALITY CHANGE [None]
